FAERS Safety Report 4716105-1 (Version None)
Quarter: 2005Q3

REPORT INFORMATION
  Report Type: 
  Country: None (occurrence: None)
  Receive Date: 20050718
  Receipt Date: 20050708
  Transmission Date: 20060218
  Serious: Yes (Hospitalization)
  Sender: FDA-Public Use
  Company Number: GR-ABBOTT-05P-066-0305528-00

PATIENT
  Sex: Male
  Weight: 57 kg

DRUGS (8)
  1. KALETRA [Suspect]
     Indication: HIV INFECTION
     Route: 048
     Dates: start: 20050610, end: 20050628
  2. STAVUDINE [Concomitant]
     Indication: HIV INFECTION
     Route: 048
     Dates: start: 20050610
  3. STAVUDINE [Concomitant]
     Dates: start: 20020530, end: 20040901
  4. DIDANOSINE [Concomitant]
     Indication: HIV INFECTION
     Route: 048
     Dates: start: 20050610
  5. DIDANOSINE [Concomitant]
     Route: 048
     Dates: start: 19961002, end: 20020530
  6. ZIDOVUDINE [Concomitant]
     Indication: HIV INFECTION
     Route: 048
     Dates: start: 19961002, end: 20020530
  7. NELFINAVIR [Concomitant]
     Indication: HIV INFECTION
     Route: 048
     Dates: start: 20020530, end: 20040901
  8. LAMIVUDINE [Concomitant]
     Indication: HIV INFECTION
     Route: 048
     Dates: start: 20020530, end: 20040901

REACTIONS (2)
  - PYREXIA [None]
  - TUBERCULOSIS [None]
